FAERS Safety Report 12375571 (Version 1)
Quarter: 2016Q2

REPORT INFORMATION
  Report Type: Spontaneous
  Country: FR (occurrence: FR)
  Receive Date: 20160517
  Receipt Date: 20160517
  Transmission Date: 20160815
  Serious: Yes (Hospitalization, Other)
  Sender: FDA-Public Use
  Company Number: FR-PFIZER INC-2016255059

PATIENT
  Age: 92 Year
  Sex: Female

DRUGS (11)
  1. SPASFON LYOC [Suspect]
     Active Substance: PHLOROGLUCINOL
     Dosage: 80 MG, 2X/DAY
     Route: 048
     Dates: start: 2013
  2. IXPRIM [Suspect]
     Active Substance: ACETAMINOPHEN\TRAMADOL HYDROCHLORIDE
     Indication: PAIN
     Dosage: UNK
     Route: 048
     Dates: start: 20160406, end: 20160408
  3. DOLIPRANE [Suspect]
     Active Substance: ACETAMINOPHEN
     Dosage: 1000 MG, 3X/DAY
     Route: 048
  4. KARDEGIC [Suspect]
     Active Substance: ASPIRIN LYSINE
     Dosage: 75 MG, 1X/DAY
     Route: 048
  5. XANAX [Suspect]
     Active Substance: ALPRAZOLAM
     Dosage: 0.25 MG, 2X/DAY
     Route: 048
  6. ALDACTAZINE [Suspect]
     Active Substance: ALTHIAZIDE\SPIRONOLACTONE
     Dosage: 1 DF, 1X/DAY
     Route: 048
  7. CHRONADALATE [Suspect]
     Active Substance: NIFEDIPINE
     Dosage: 1 DF, 1X/DAY
     Route: 048
  8. DUPHALAC [Suspect]
     Active Substance: LACTULOSE
     Dosage: UNK
     Route: 048
     Dates: start: 2013
  9. ZYRTEC [Suspect]
     Active Substance: CETIRIZINE HYDROCHLORIDE
     Dosage: 1 DF, 1X/DAY
     Route: 048
     Dates: start: 201307
  10. ACUPAN [Suspect]
     Active Substance: NEFOPAM HYDROCHLORIDE
     Dosage: 3 DF, DAILY AS NEEDED
     Route: 048
     Dates: start: 201307
  11. CALCIUM VITAMIN D3 TEVA [Suspect]
     Active Substance: CALCIUM\CHOLECALCIFEROL
     Dosage: 1 DF, 1X/DAY
     Route: 048
     Dates: start: 201307

REACTIONS (4)
  - Fall [Unknown]
  - Pain [Unknown]
  - Haematoma [Unknown]
  - Carotid arteriosclerosis [None]

NARRATIVE: CASE EVENT DATE: 201604
